FAERS Safety Report 24982694 (Version 1)
Quarter: 2025Q1

REPORT INFORMATION
  Report Type: Spontaneous
  Country: CA (occurrence: FR)
  Receive Date: 20250218
  Receipt Date: 20250218
  Transmission Date: 20250408
  Serious: Yes (Other)
  Sender: AFAXYS
  Company Number: CA-AFAXYS PHARMA, LLC-2025AFX00001

PATIENT
  Age: 29 Year
  Sex: Female

DRUGS (3)
  1. LIDOCAINE [Suspect]
     Active Substance: LIDOCAINE
     Indication: Local anaesthesia
  2. LIDOCAINE [Suspect]
     Active Substance: LIDOCAINE
  3. LIDOCAINE [Suspect]
     Active Substance: LIDOCAINE
     Route: 008

REACTIONS (1)
  - Embolia cutis medicamentosa [Recovering/Resolving]
